FAERS Safety Report 13102274 (Version 1)
Quarter: 2017Q1

REPORT INFORMATION
  Report Type: Spontaneous
  Country: US (occurrence: US)
  Receive Date: 20170110
  Receipt Date: 20170110
  Transmission Date: 20170428
  Serious: No
  Sender: FDA-Public Use
  Company Number: US-DRREDDYS-USA/USA/16/0082075

PATIENT
  Sex: Male
  Weight: 65.77 kg

DRUGS (7)
  1. BENADRYL [Concomitant]
     Active Substance: DIPHENHYDRAMINE HYDROCHLORIDE
     Indication: SKIN DISCOLOURATION
  2. BENADRYL [Concomitant]
     Active Substance: DIPHENHYDRAMINE HYDROCHLORIDE
     Indication: ERYTHEMA
  3. IBUPROFEN. [Suspect]
     Active Substance: IBUPROFEN
     Indication: SKIN DISCOLOURATION
  4. TRIAMCINOLONE ACETONIDE. [Concomitant]
     Active Substance: TRIAMCINOLONE ACETONIDE
     Indication: PSORIASIS
     Route: 061
     Dates: start: 20160802
  5. IBUPROFEN. [Suspect]
     Active Substance: IBUPROFEN
     Indication: SKIN BURNING SENSATION
     Route: 065
  6. IBUPROFEN. [Suspect]
     Active Substance: IBUPROFEN
     Indication: ERYTHEMA
  7. BENADRYL [Concomitant]
     Active Substance: DIPHENHYDRAMINE HYDROCHLORIDE
     Indication: SKIN BURNING SENSATION
     Route: 065

REACTIONS (1)
  - Drug ineffective for unapproved indication [Unknown]
